FAERS Safety Report 25434170 (Version 1)
Quarter: 2025Q2

REPORT INFORMATION
  Report Type: Spontaneous
  Country: ES (occurrence: ES)
  Receive Date: 20250613
  Receipt Date: 20250613
  Transmission Date: 20250716
  Serious: Yes (Other)
  Sender: SANOFI AVENTIS
  Company Number: None

PATIENT
  Age: 48 Year
  Sex: Female

DRUGS (14)
  1. ISONIAZID\RIFAMPIN [Suspect]
     Active Substance: ISONIAZID\RIFAMPIN
     Indication: Tuberculosis
     Dosage: 2 TABLETS/24 H
     Route: 048
     Dates: start: 20250507
  2. CARBOXYMETHYLCELLULOSE [Concomitant]
     Active Substance: CARBOXYMETHYLCELLULOSE
     Indication: Sicca syndrome
     Dosage: 1 DROP, Q8H
     Route: 031
     Dates: start: 20200225
  3. Lexxema [Concomitant]
     Indication: Sicca syndrome
     Route: 061
     Dates: start: 20220604
  4. OMEPRAZOLE [Concomitant]
     Active Substance: OMEPRAZOLE
     Indication: Sicca syndrome
     Dosage: 20.0 MG BEFORE BREAKFAST
     Route: 048
     Dates: start: 20230609
  5. BILASTINE [Concomitant]
     Active Substance: BILASTINE
     Indication: Hypersensitivity
     Dosage: 20.0 MG EVERY 24 HOURS, IN THE MORNING
     Route: 048
     Dates: start: 20240322
  6. Cerazet [Concomitant]
     Indication: Oral contraception
     Dosage: 0.075 MG EVERY 24 HOURS
     Route: 048
     Dates: start: 20240203
  7. DEXKETOPROFEN TROMETAMOL [Concomitant]
     Active Substance: DEXKETOPROFEN TROMETAMOL
     Indication: Migraine
     Dosage: 25.0 MG EVERY 48 HOURS
     Route: 048
     Dates: start: 20230906
  8. METHOTREXATE [Concomitant]
     Active Substance: METHOTREXATE
     Indication: Sicca syndrome
     Dosage: 10.0 MG EVERY 7 DAYS
     Route: 048
     Dates: start: 20250213
  9. FOLIC ACID [Concomitant]
     Active Substance: FOLIC ACID
     Indication: Sicca syndrome
     Dosage: 5.0 MG EVERY 7 DAYS
     Route: 048
     Dates: start: 20250213
  10. Zonesme [Concomitant]
     Indication: Asthma
     Dosage: 100.0 MG AT DINNER
     Route: 048
     Dates: start: 20241126
  11. HYDROXYCHLOROQUINE SULFATE [Concomitant]
     Active Substance: HYDROXYCHLOROQUINE SULFATE
     Indication: Sicca syndrome
     Dosage: 300.0 MG AT BREAKFAST
     Route: 048
     Dates: start: 20241210
  12. PIROXICAM [Concomitant]
     Active Substance: PIROXICAM
     Indication: Bronchitis
     Dosage: 2.0 PUFFS EVERY 8 HOURS
     Route: 055
     Dates: start: 20250414
  13. FLUOXETINE [Concomitant]
     Active Substance: FLUOXETINE HYDROCHLORIDE
     Indication: Obesity
     Dosage: 40.0 MG AT BREAKFAST
     Route: 048
     Dates: start: 20231205
  14. ZOMIG [Concomitant]
     Active Substance: ZOLMITRIPTAN
     Indication: Migraine
     Dosage: 5.0 MG EVERY 72 HOURS
     Route: 048
     Dates: start: 20150610

REACTIONS (7)
  - Photosensitivity reaction [Not Recovered/Not Resolved]
  - Dysgeusia [Not Recovered/Not Resolved]
  - Hypotension [Not Recovered/Not Resolved]
  - Dizziness [Not Recovered/Not Resolved]
  - Nausea [Not Recovered/Not Resolved]
  - Tear discolouration [Not Recovered/Not Resolved]
  - Vomiting [Not Recovered/Not Resolved]

NARRATIVE: CASE EVENT DATE: 20250510
